FAERS Safety Report 21315476 (Version 3)
Quarter: 2022Q4

REPORT INFORMATION
  Report Type: Spontaneous
  Country: JP (occurrence: None)
  Receive Date: 20220909
  Receipt Date: 20221005
  Transmission Date: 20230113
  Serious: Yes (Death, Hospitalization)
  Sender: FDA-Public Use
  Company Number: JP-Eisai Medical Research-EC-2022-123146

PATIENT
  Age: 69 Year
  Sex: Male
  Weight: 68 kg

DRUGS (1)
  1. LENVATINIB [Suspect]
     Active Substance: LENVATINIB
     Indication: Hepatocellular carcinoma
     Route: 048

REACTIONS (4)
  - Tumour rupture [Fatal]
  - Shock [Fatal]
  - Tumour haemorrhage [Fatal]
  - Intratumoural haematoma [Not Recovered/Not Resolved]
